FAERS Safety Report 20772115 (Version 13)
Quarter: 2025Q3

REPORT INFORMATION
  Report Type: Report from Study
  Country: US (occurrence: US)
  Receive Date: 20220502
  Receipt Date: 20250911
  Transmission Date: 20251021
  Serious: Yes (Hospitalization, Other)
  Sender: TAKEDA
  Company Number: US-TAKEDA-2022TUS023009

PATIENT
  Sex: Male

DRUGS (8)
  1. BRIGATINIB [Suspect]
     Active Substance: BRIGATINIB
     Indication: Neurofibromatosis
  2. BRIGATINIB [Suspect]
     Active Substance: BRIGATINIB
     Indication: Lung neoplasm malignant
     Dosage: 180 MILLIGRAM, QD
  3. BRIGATINIB [Suspect]
     Active Substance: BRIGATINIB
  4. BRIGATINIB [Suspect]
     Active Substance: BRIGATINIB
  5. BRIGATINIB [Suspect]
     Active Substance: BRIGATINIB
  6. BRIGATINIB [Suspect]
     Active Substance: BRIGATINIB
     Dosage: 90 MILLIGRAM, QD
  7. BRIGATINIB [Suspect]
     Active Substance: BRIGATINIB
     Dosage: 60 MILLIGRAM, QD
     Dates: start: 20240824
  8. BRIGATINIB [Suspect]
     Active Substance: BRIGATINIB

REACTIONS (8)
  - Accident [Unknown]
  - Skin laceration [Unknown]
  - Deafness [Unknown]
  - Dysphagia [Unknown]
  - Hypoacusis [Unknown]
  - Product use issue [Unknown]
  - Off label use [Unknown]
  - Back pain [Unknown]
